FAERS Safety Report 12749145 (Version 2)
Quarter: 2017Q4

REPORT INFORMATION
  Report Type: Spontaneous
  Country: SE (occurrence: SE)
  Receive Date: 20160915
  Receipt Date: 20171114
  Transmission Date: 20180320
  Serious: Yes (Other)
  Sender: FDA-Public Use
  Company Number: SE-ELI_LILLY_AND_COMPANY-SE201609003669

PATIENT
  Sex: Female

DRUGS (1)
  1. ZYPREXA [Suspect]
     Active Substance: OLANZAPINE
     Indication: PSYCHOTIC DISORDER
     Dosage: UNK, UNKNOWN
     Route: 065

REACTIONS (8)
  - Amenorrhoea [Unknown]
  - Blood prolactin increased [Unknown]
  - Fatigue [Unknown]
  - Galactorrhoea [Unknown]
  - Weight increased [Unknown]
  - Hypersomnia [Unknown]
  - Skin striae [Unknown]
  - Hair disorder [Unknown]

NARRATIVE: CASE EVENT DATE: 2011
